FAERS Safety Report 6226946-X (Version None)
Quarter: 2009Q2

REPORT INFORMATION
  Report Type: 
  Country: None (occurrence: None)
  Receive Date: 20090612
  Receipt Date: 20090522
  Transmission Date: 20091009
  Serious: No
  Sender: FDA-Public Use
  Company Number: US-ABBOTT-09P-163-0575747-00

PATIENT
  Sex: Male
  Weight: 44.8 kg

DRUGS (5)
  1. HUMIRA [Suspect]
     Indication: CROHN'S DISEASE
     Route: 058
     Dates: start: 20090210, end: 20090501
  2. HUMIRA [Suspect]
     Indication: ARTHRITIS
     Route: 058
     Dates: start: 20081212, end: 20090210
  3. HUMIRA [Suspect]
     Route: 058
     Dates: start: 20090522
  4. MERCAPTOPURINE [Concomitant]
     Indication: CROHN'S DISEASE
  5. PENTASA [Concomitant]
     Indication: CROHN'S DISEASE
     Route: 048

REACTIONS (2)
  - ARTHRITIS [None]
  - DRUG INEFFECTIVE [None]
